FAERS Safety Report 7675079-4 (Version None)
Quarter: 2011Q3

REPORT INFORMATION
  Report Type: 
  Country: None (occurrence: None)
  Receive Date: 20110810
  Receipt Date: 20110808
  Transmission Date: 20111222
  Serious: Yes (Hospitalization, Other)
  Sender: FDA-Public Use
  Company Number: US-MERCK-1011USA03227

PATIENT
  Age: 63 Year
  Sex: Female

DRUGS (2)
  1. FOSAMAX [Suspect]
     Indication: OSTEOPOROSIS
     Route: 048
     Dates: start: 19950101, end: 20040315
  2. BONIVA [Suspect]
     Indication: OSTEOPOROSIS
     Route: 065
     Dates: start: 20040101, end: 20080101

REACTIONS (92)
  - FALL [None]
  - POOR QUALITY SLEEP [None]
  - TOOTH DISORDER [None]
  - SPINAL COMPRESSION FRACTURE [None]
  - ULCER [None]
  - TOOTH FRACTURE [None]
  - DEMENTIA [None]
  - CARDIOMEGALY [None]
  - BREAST CYST [None]
  - HEAD INJURY [None]
  - SPINAL OSTEOARTHRITIS [None]
  - UPPER EXTREMITY MASS [None]
  - ROTATOR CUFF SYNDROME [None]
  - ARTHROPATHY [None]
  - GASTROOESOPHAGEAL REFLUX DISEASE [None]
  - BURSITIS [None]
  - BONE LOSS [None]
  - BONE DISORDER [None]
  - GOITRE [None]
  - GINGIVAL DISORDER [None]
  - INTERVERTEBRAL DISC DEGENERATION [None]
  - PRURITUS [None]
  - TENDON DISORDER [None]
  - BLOOD CALCIUM INCREASED [None]
  - BONE LESION [None]
  - OEDEMA PERIPHERAL [None]
  - MYOFASCIAL PAIN SYNDROME [None]
  - MENISCUS LESION [None]
  - SPONDYLOLISTHESIS [None]
  - ANXIETY [None]
  - DYSKINESIA [None]
  - POST-TRAUMATIC STRESS DISORDER [None]
  - INSOMNIA [None]
  - PAIN [None]
  - INFLAMMATION [None]
  - ADJUSTMENT DISORDER WITH DEPRESSED MOOD [None]
  - HYPERTENSION [None]
  - CEREBRAL ATROPHY [None]
  - DIZZINESS [None]
  - ADVERSE DRUG REACTION [None]
  - EYE DISORDER [None]
  - DYSGEUSIA [None]
  - POLYP [None]
  - LAGOPHTHALMOS [None]
  - IRRITABLE BOWEL SYNDROME [None]
  - PAIN IN EXTREMITY [None]
  - HYPERCHOLESTEROLAEMIA [None]
  - HIP FRACTURE [None]
  - FEMUR FRACTURE [None]
  - FOOT FRACTURE [None]
  - FLANK PAIN [None]
  - FATIGUE [None]
  - DIVERTICULUM [None]
  - ERUCTATION [None]
  - DYSPEPSIA [None]
  - PERIPHERAL VASCULAR DISORDER [None]
  - PERIODONTITIS [None]
  - PSORIASIS [None]
  - LOW TURNOVER OSTEOPATHY [None]
  - OSTEONECROSIS OF JAW [None]
  - ANAEMIA POSTOPERATIVE [None]
  - OSTEONECROSIS [None]
  - OSTEOARTHRITIS [None]
  - COLITIS [None]
  - HYPERLIPIDAEMIA [None]
  - CYST [None]
  - HAEMORRHOIDS [None]
  - PSEUDODEMENTIA [None]
  - TONGUE ULCERATION [None]
  - PERINEURIAL CYST [None]
  - TENDON RUPTURE [None]
  - VITAMIN D DEFICIENCY [None]
  - LUMBAR SPINAL STENOSIS [None]
  - OSTEOPENIA [None]
  - ADVERSE EVENT [None]
  - CAROTID ARTERY STENOSIS [None]
  - BONE GRAFT [None]
  - EXCORIATION [None]
  - ABDOMINAL DISCOMFORT [None]
  - FIBROCYSTIC BREAST DISEASE [None]
  - DEPRESSION [None]
  - ANHEDONIA [None]
  - DRUG HYPERSENSITIVITY [None]
  - THYROID DISORDER [None]
  - RIB FRACTURE [None]
  - EYELID PTOSIS [None]
  - OBSESSIVE-COMPULSIVE DISORDER [None]
  - MUSCLE STRAIN [None]
  - GASTROINTESTINAL DISORDER [None]
  - FACIAL PARESIS [None]
  - SALIVA ALTERED [None]
  - ATELECTASIS [None]
